FAERS Safety Report 5729009-2 (Version None)
Quarter: 2008Q2

REPORT INFORMATION
  Report Type: 
  Country: None (occurrence: None)
  Receive Date: 20080430
  Receipt Date: 20080414
  Transmission Date: 20081010
  Serious: Yes (Hospitalization)
  Sender: FDA-Public Use
  Company Number: DSA_31723_2008

PATIENT
  Sex: Female

DRUGS (4)
  1. TAVOR /00273201/ (TAVOR - LORAZEPAM) (1 MG, 2.5 MG) [Suspect]
     Dosage: (50 TABLETS COMBINED OF 1 MG AND 2.5 MG.  ORAL), (50 TABLETS COMBINED OF 1 MG AND 2.5 MG. ORAL)`
     Route: 048
     Dates: start: 20080413, end: 20080413
  2. TREVILOR (TREVILOR - VENLAFAXINE HYDROCHLORIDE) (NOT SPECIFIED) [Suspect]
     Dosage: (2 DF 1X ORAL)
     Route: 048
     Dates: start: 20080413, end: 20080413
  3. CANNABIS (CANNABIS) [Suspect]
     Dosage: RESPIRATORY (INHALATION)
     Route: 055
     Dates: start: 20080413, end: 20080413
  4. ETHANOL (ALCOHOL - ETHANOL) [Suspect]
     Dosage: ORAL
     Route: 048
     Dates: start: 20080413, end: 20080413

REACTIONS (6)
  - ALCOHOL USE [None]
  - BLOOD LACTATE DEHYDROGENASE INCREASED [None]
  - DEPRESSED LEVEL OF CONSCIOUSNESS [None]
  - MULTIPLE DRUG OVERDOSE INTENTIONAL [None]
  - SUICIDE ATTEMPT [None]
  - TACHYCARDIA [None]
